FAERS Safety Report 23783332 (Version 1)
Quarter: 2024Q2

REPORT INFORMATION
  Report Type: Spontaneous
  Country: US (occurrence: US)
  Receive Date: 20240425
  Receipt Date: 20240425
  Transmission Date: 20240715
  Serious: Yes (Hospitalization)
  Sender: FDA-Public Use
  Company Number: US-MYLANLABS-2024M1037729

PATIENT
  Age: 7 Year
  Sex: Male

DRUGS (4)
  1. CLONIDINE [Suspect]
     Active Substance: CLONIDINE
     Indication: Congenital central nervous system anomaly
     Dosage: UNK
     Route: 048
  2. CLONIDINE [Suspect]
     Active Substance: CLONIDINE
     Indication: Hypothermia
  3. CLONIDINE [Suspect]
     Active Substance: CLONIDINE
     Indication: Hyperhidrosis
  4. CLONIDINE [Suspect]
     Active Substance: CLONIDINE
     Indication: Nervous system disorder

REACTIONS (2)
  - Hypotension [Unknown]
  - Off label use [Unknown]
